FAERS Safety Report 9382698 (Version 1)
Quarter: 2013Q3

REPORT INFORMATION
  Report Type: Spontaneous
  Country: IE (occurrence: IE)
  Receive Date: 20130703
  Receipt Date: 20130703
  Transmission Date: 20140515
  Serious: Yes (Hospitalization, Other)
  Sender: FDA-Public Use
  Company Number: IE-ASTRAZENECA-2013SE48866

PATIENT
  Age: 69 Year
  Sex: Male
  Weight: 105.8 kg

DRUGS (6)
  1. CRESTOR [Suspect]
     Indication: CARDIOVASCULAR EVENT PROPHYLAXIS
     Route: 048
     Dates: start: 20130412, end: 20130526
  2. NU-SEALS ASPIRIN [Concomitant]
     Indication: ANGINA PECTORIS
     Dates: start: 20130308
  3. PLAVIX [Concomitant]
     Indication: ANGINA PECTORIS
     Dates: start: 20120508, end: 20130525
  4. AMLODIPINE [Concomitant]
     Indication: CARDIOVASCULAR EVENT PROPHYLAXIS
     Dates: start: 20090914, end: 20120412
  5. AMLODIPINE [Concomitant]
     Indication: CARDIOVASCULAR EVENT PROPHYLAXIS
     Dates: start: 20120413
  6. FLURAZEPAM HYDROCHLORIDE [Concomitant]
     Indication: INSOMNIA
     Dosage: 30MG, DAILY, NOCTE WHEN REQUIRED
     Dates: start: 20081110, end: 20130525

REACTIONS (2)
  - Fall [Unknown]
  - Rhabdomyolysis [Unknown]
